FAERS Safety Report 19764489 (Version 1)
Quarter: 2021Q3

REPORT INFORMATION
  Report Type: Spontaneous
  Country: AU (occurrence: AU)
  Receive Date: 20210831
  Receipt Date: 20210831
  Transmission Date: 20211014
  Serious: Yes (Other)
  Sender: FDA-Public Use
  Company Number: AU-ABBVIE-21K-008-4060502-00

PATIENT

DRUGS (3)
  1. DUODOPA [Suspect]
     Active Substance: CARBIDOPA\LEVODOPA
  2. DUODOPA [Suspect]
     Active Substance: CARBIDOPA\LEVODOPA
     Indication: PARKINSON^S DISEASE
     Route: 050
  3. SINEMET [Concomitant]
     Active Substance: CARBIDOPA\LEVODOPA
     Indication: PRODUCT USED FOR UNKNOWN INDICATION
     Dosage: LIQUID

REACTIONS (9)
  - Gastrointestinal erosion [Unknown]
  - Drug ineffective [Unknown]
  - Embedded device [Unknown]
  - Constipation [Unknown]
  - Chest discomfort [Unknown]
  - Fall [Unknown]
  - Device occlusion [Unknown]
  - Pain [Unknown]
  - Deep brain stimulation [Not Recovered/Not Resolved]
